FAERS Safety Report 20189711 (Version 1)
Quarter: 2021Q4

REPORT INFORMATION
  Report Type: Report from Study
  Country: IR (occurrence: IR)
  Receive Date: 20211215
  Receipt Date: 20211215
  Transmission Date: 20220303
  Serious: Yes (Other)
  Sender: FDA-Public Use
  Company Number: IR-BAYER-2021A267117

PATIENT

DRUGS (1)
  1. EYLEA [Suspect]
     Active Substance: AFLIBERCEPT
     Indication: Neovascular age-related macular degeneration
     Dosage: RIGHT EYE
     Route: 031
     Dates: start: 20201213

REACTIONS (2)
  - Eye irritation [Recovered/Resolved]
  - Lacrimation disorder [Recovered/Resolved]

NARRATIVE: CASE EVENT DATE: 20211204
